FAERS Safety Report 25770652 (Version 1)
Quarter: 2025Q3

REPORT INFORMATION
  Report Type: Spontaneous
  Country: US (occurrence: US)
  Receive Date: 20250908
  Receipt Date: 20250908
  Transmission Date: 20251021
  Serious: No
  Sender: PRINSTON PHARMACEUTICAL
  Company Number: US-PRINSTON PHARMACEUTICAL INC.-2025PRN00085

PATIENT
  Sex: Female
  Weight: 78.018 kg

DRUGS (14)
  1. METHYLPHENIDATE HYDROCHLORIDE [Suspect]
     Active Substance: METHYLPHENIDATE HYDROCHLORIDE
     Indication: Chronic fatigue syndrome
     Dosage: 20 MG, 3X/DAY
     Route: 048
  2. CALCIUM [Concomitant]
     Active Substance: CALCIUM
  3. MINERALS\VITAMINS [Concomitant]
     Active Substance: MINERALS\VITAMINS
  4. MAGNESIUM [Concomitant]
     Active Substance: MAGNESIUM
  5. FISH OIL [Concomitant]
     Active Substance: FISH OIL
  6. COQ10 [ASCORBIC ACID;BETACAROTENE;CUPRIC OXIDE;MANGANESE SULFATE;SELEN [Concomitant]
  7. BIOTIN [Concomitant]
     Active Substance: BIOTIN
  8. VITAMIN D NOS [Concomitant]
     Active Substance: CHOLECALCIFEROL\ERGOCALCIFEROL
  9. LYSINE [Concomitant]
     Active Substance: LYSINE
  10. GABAPENTIN [Concomitant]
     Active Substance: GABAPENTIN
  11. OMEPRAZOLE [Concomitant]
     Active Substance: OMEPRAZOLE
  12. METOPROLOL [Concomitant]
     Active Substance: METOPROLOL
  13. JANTOVEN [Concomitant]
     Active Substance: WARFARIN SODIUM
  14. BERBERINE [Concomitant]
     Active Substance: BERBERINE

REACTIONS (3)
  - Drug ineffective [Not Recovered/Not Resolved]
  - Nausea [Not Recovered/Not Resolved]
  - Product substitution issue [Not Recovered/Not Resolved]
